FAERS Safety Report 25969950 (Version 2)
Quarter: 2025Q4

REPORT INFORMATION
  Report Type: Spontaneous
  Country: US (occurrence: None)
  Receive Date: 20251028
  Receipt Date: 20251215
  Transmission Date: 20260117
  Serious: No
  Sender: UCB
  Company Number: US-UCBSA-2025040537

PATIENT
  Age: 40 Year

DRUGS (1)
  1. BIMZELX [Suspect]
     Active Substance: BIMEKIZUMAB-BKZX
     Indication: Ankylosing spondylitis
     Dosage: 160 MILLIGRAM, EV 4 WEEKS

REACTIONS (7)
  - Pruritus [Unknown]
  - Urinary tract infection [Unknown]
  - Infection [Unknown]
  - Infective glossitis [Unknown]
  - Pharyngitis [Unknown]
  - Blister [Unknown]
  - Drug ineffective [Unknown]
